FAERS Safety Report 13114118 (Version 1)
Quarter: 2017Q1

REPORT INFORMATION
  Report Type: Spontaneous
  Country: US (occurrence: US)
  Receive Date: 20170113
  Receipt Date: 20170113
  Transmission Date: 20170428
  Serious: Yes (Other)
  Sender: FDA-Public Use
  Company Number: US-009507513-1701USA004641

PATIENT
  Age: 65 Year
  Sex: Female
  Weight: 58.06 kg

DRUGS (16)
  1. PREDNISONE. [Suspect]
     Active Substance: PREDNISONE
     Indication: ASTHMA
     Dosage: 20 MG, QD
     Route: 048
     Dates: start: 201506, end: 2015
  2. PREDNISONE. [Suspect]
     Active Substance: PREDNISONE
     Dosage: UNK, DECREASED DOSE
     Route: 048
     Dates: start: 201507, end: 20150816
  3. PROVENTIL [Suspect]
     Active Substance: ALBUTEROL
     Dosage: UNK, DECREASED TO 3-4 TIMES A DAY
     Route: 055
  4. CHLORTHALIDONE. [Concomitant]
     Active Substance: CHLORTHALIDONE
     Indication: BLOOD PRESSURE ABNORMAL
     Dosage: 25 MG, UNK
     Dates: start: 2014
  5. ALEVE [Concomitant]
     Active Substance: NAPROXEN SODIUM
     Indication: ARTHRITIS
     Dosage: UNK
  6. DEPO-MEDROL [Concomitant]
     Active Substance: METHYLPREDNISOLONE ACETATE
     Indication: ASTHMA
     Dosage: 80 MG, ONCE
     Route: 030
     Dates: start: 2015, end: 2015
  7. ALBUTEROL (+) IPRATROPIUM BROMIDE [Concomitant]
     Indication: ASTHMA
     Dosage: UNK, PRN, FORMULATION: IN AMPULES, NEBULIZER
     Route: 055
     Dates: start: 20150626, end: 201608
  8. SINGULAIR [Concomitant]
     Active Substance: MONTELUKAST SODIUM
     Indication: ASTHMA
     Dosage: 10 MG, UNK
     Route: 048
  9. AZITHROMYCIN ANHYDROUS. [Concomitant]
     Active Substance: AZITHROMYCIN ANHYDROUS
     Dosage: UNK
  10. PREDNISONE. [Suspect]
     Active Substance: PREDNISONE
     Dosage: 60 MG, QD
     Route: 048
     Dates: start: 20150705, end: 20150719
  11. REMERON [Concomitant]
     Active Substance: MIRTAZAPINE
     Indication: DEPRESSION
     Dosage: 45 MG, UNK
     Route: 048
  12. ALBUTEROL. [Concomitant]
     Active Substance: ALBUTEROL
     Indication: ASTHMA
     Dosage: UNK, PRN; FORMULATION: LIQUID FOR NEBULIZER
     Route: 055
     Dates: start: 20150619, end: 201608
  13. CROMOLYN [Concomitant]
     Active Substance: CROMOLYN
     Indication: ASTHMA
     Dosage: UNK, PRN; FORMULATION: NEBULIZER
     Route: 055
     Dates: start: 201508, end: 201608
  14. PROVENTIL [Suspect]
     Active Substance: ALBUTEROL
     Indication: ASTHMA
     Dosage: UNK, RESCUE INHALER, 6 TIMES A DAY AS NEEDED
     Route: 055
     Dates: end: 201608
  15. SYMBICORT [Concomitant]
     Active Substance: BUDESONIDE\FORMOTEROL FUMARATE DIHYDRATE
     Indication: ASTHMA
     Dosage: TWICE IN THE MORNING AND TWICE AT NIGHT
     Dates: start: 2013
  16. ALPRAZOLAM. [Concomitant]
     Active Substance: ALPRAZOLAM
     Indication: SLEEP DISORDER
     Dosage: 1 MG, UNK
     Dates: start: 2011

REACTIONS (11)
  - Memory impairment [Recovering/Resolving]
  - Sleep apnoea syndrome [Not Recovered/Not Resolved]
  - Immunodeficiency [Unknown]
  - Asthenia [Unknown]
  - Agitation [Recovered/Resolved with Sequelae]
  - Feeling jittery [Unknown]
  - Product container issue [Unknown]
  - Malaise [Unknown]
  - Drug ineffective [Unknown]
  - Blood pressure increased [Unknown]
  - Insomnia [Recovered/Resolved]

NARRATIVE: CASE EVENT DATE: 2015
